FAERS Safety Report 7620497-3 (Version None)
Quarter: 2011Q3

REPORT INFORMATION
  Report Type: 
  Country: None (occurrence: None)
  Receive Date: 20110719
  Receipt Date: 20110711
  Transmission Date: 20111222
  Serious: Yes (Death)
  Sender: FDA-Public Use
  Company Number: US-PURDUE-USA-2011-0071772

PATIENT
  Sex: Female

DRUGS (2)
  1. DILAUDID [Suspect]
     Indication: CANCER PAIN
  2. OXYCONTIN [Suspect]
     Indication: CANCER PAIN

REACTIONS (1)
  - NEOPLASM MALIGNANT [None]
